FAERS Safety Report 6312494-5 (Version None)
Quarter: 2009Q3

REPORT INFORMATION
  Report Type: 
  Country: None (occurrence: None)
  Receive Date: 20090813
  Receipt Date: 20090803
  Transmission Date: 20100115
  Serious: Yes (Death)
  Sender: FDA-Public Use
  Company Number: OPER20090003

PATIENT
  Age: 29 Year
  Sex: Female

DRUGS (8)
  1. OPANA ER [Suspect]
     Indication: BACK PAIN
     Dosage: 1 TAB Q12H, PER ORAL
     Route: 048
     Dates: start: 20060801
  2. OPANA ER [Suspect]
     Indication: RADICULOPATHY
     Dosage: 1 TAB Q12H, PER ORAL
     Route: 048
     Dates: start: 20060801
  3. OPANA [Suspect]
     Indication: BREAKTHROUGH PAIN
     Dosage: 1-2 TABS TID PRN, PER ORAL
     Route: 048
     Dates: start: 20060801
  4. ZANAFLEX [Concomitant]
  5. LYRICA [Concomitant]
  6. ZOLOFT [Concomitant]
  7. IMITREX [Concomitant]
  8. HYDROCHLOROTHIAZIDE [Concomitant]

REACTIONS (3)
  - ACCIDENTAL DEATH [None]
  - MULTIPLE DRUG OVERDOSE [None]
  - WRONG TECHNIQUE IN DRUG USAGE PROCESS [None]
